FAERS Safety Report 6145538-4 (Version None)
Quarter: 2009Q2

REPORT INFORMATION
  Report Type: 
  Country: None (occurrence: None)
  Receive Date: 20090402
  Receipt Date: 20090302
  Transmission Date: 20091009
  Serious: Yes (Other)
  Sender: FDA-Public Use
  Company Number: 186481ISR

PATIENT
  Age: 65 Year
  Sex: Female

DRUGS (1)
  1. LITHIUM CARBONATE [Suspect]
     Indication: RENAL TRANSPLANT
     Dosage: 1000 MG

REACTIONS (2)
  - PARKINSONISM [None]
  - TREMOR [None]
